FAERS Safety Report 6902628-3 (Version None)
Quarter: 2010Q3

REPORT INFORMATION
  Report Type: 
  Country: None (occurrence: None)
  Receive Date: 20100803
  Receipt Date: 20080702
  Transmission Date: 20110219
  Serious: Yes (Other)
  Sender: FDA-Public Use
  Company Number: US-PFIZER INC-2008056356

PATIENT
  Sex: Female
  Weight: 81.6 kg

DRUGS (6)
  1. LYRICA [Suspect]
     Indication: NEURALGIA
     Route: 048
     Dates: start: 20060627
  2. ULTRAM [Concomitant]
     Indication: PAIN
  3. LASIX [Concomitant]
     Dosage: AS NEEDED
  4. SPIRONOLACTONE [Concomitant]
  5. ATIVAN [Concomitant]
     Dosage: AS NEEDED
  6. PROMETHAZINE [Concomitant]
     Dosage: EVERY SIX HOURS AS NEEDED

REACTIONS (3)
  - FATIGUE [None]
  - PAIN [None]
  - SWELLING [None]
